FAERS Safety Report 13684703 (Version 1)
Quarter: 2017Q2

REPORT INFORMATION
  Report Type: Spontaneous
  Country: US (occurrence: US)
  Receive Date: 20170623
  Receipt Date: 20170623
  Transmission Date: 20170830
  Serious: No
  Sender: FDA-Public Use
  Company Number: US-ASTELLAS-2017US017272

PATIENT
  Sex: Female

DRUGS (1)
  1. VESICARE [Suspect]
     Active Substance: SOLIFENACIN SUCCINATE
     Indication: PRODUCT USED FOR UNKNOWN INDICATION
     Dosage: 5 MG, UNKNOWN FREQ. FOR 11 DAYS
     Route: 048
     Dates: start: 20170419, end: 20170430

REACTIONS (8)
  - Constipation [Unknown]
  - Scratch [Recovered/Resolved]
  - Dyspnoea [Unknown]
  - Feeling abnormal [Recovered/Resolved]
  - Pruritus generalised [Recovered/Resolved]
  - Eye pruritus [Unknown]
  - Vision blurred [Recovered/Resolved]
  - Pruritus [Recovered/Resolved]
